FAERS Safety Report 18899707 (Version 2)
Quarter: 2021Q1

REPORT INFORMATION
  Report Type: Spontaneous
  Country: US (occurrence: US)
  Receive Date: 20210216
  Receipt Date: 20210301
  Transmission Date: 20210420
  Serious: Yes (Other)
  Sender: FDA-Public Use
  Company Number: US-SAGE-2021SAGE000014

PATIENT
  Age: 31 Year
  Sex: Female

DRUGS (2)
  1. ZULRESSO [Suspect]
     Active Substance: BREXANOLONE
     Indication: PERINATAL DEPRESSION
     Dosage: UNK
     Route: 042
     Dates: start: 20210205, end: 20210207
  2. ZOLOFT [Suspect]
     Active Substance: SERTRALINE HYDROCHLORIDE
     Indication: PRODUCT USED FOR UNKNOWN INDICATION
     Dosage: 75 MG
     Route: 065

REACTIONS (9)
  - Gait disturbance [Recovering/Resolving]
  - Inappropriate affect [Recovering/Resolving]
  - Suicidal ideation [Recovered/Resolved]
  - Dizziness [Recovering/Resolving]
  - Head discomfort [Recovering/Resolving]
  - Perinatal depression [Recovered/Resolved]
  - Homicidal ideation [Recovered/Resolved]
  - Somnolence [Recovering/Resolving]
  - Feeling abnormal [Recovering/Resolving]

NARRATIVE: CASE EVENT DATE: 202102
